FAERS Safety Report 23169294 (Version 1)
Quarter: 2023Q4

REPORT INFORMATION
  Report Type: Spontaneous
  Country: CH (occurrence: None)
  Receive Date: 20231110
  Receipt Date: 20231110
  Transmission Date: 20240110
  Serious: Yes (Other)
  Sender: FDA-Public Use
  Company Number: CH-INFO-20230212

PATIENT
  Age: 5 Day
  Weight: 3.1 kg

DRUGS (2)
  1. ROPIVACAINE [Suspect]
     Active Substance: ROPIVACAINE
     Indication: Nerve block
     Dosage: DISTRIBUTED OVER FOUR INJECTION SITES ; IN TOTAL
  2. DEXMEDETOMIDINE [Suspect]
     Active Substance: DEXMEDETOMIDINE
     Indication: Nerve block
     Dosage: DISTRIBUTED OVER FOUR INJECTION SITES ; IN TOTAL

REACTIONS (1)
  - Vasoconstriction [Recovered/Resolved]
